FAERS Safety Report 23980703 (Version 1)
Quarter: 2024Q2

REPORT INFORMATION
  Report Type: Spontaneous
  Country: AU (occurrence: AU)
  Receive Date: 20240617
  Receipt Date: 20240617
  Transmission Date: 20240715
  Serious: Yes (Other)
  Sender: FDA-Public Use
  Company Number: AU-GENERIC HEALTH PTY. LTD.-2024-04875

PATIENT

DRUGS (1)
  1. FLUOXETINE [Suspect]
     Active Substance: FLUOXETINE HYDROCHLORIDE
     Indication: Agitated depression
     Dosage: UNK
     Route: 065

REACTIONS (4)
  - Agitation [Unknown]
  - Suicidal ideation [Unknown]
  - Treatment noncompliance [Unknown]
  - Off label use [Unknown]
